FAERS Safety Report 16306605 (Version 1)
Quarter: 2019Q2

REPORT INFORMATION
  Report Type: Spontaneous
  Country: KZ (occurrence: KZ)
  Receive Date: 20190513
  Receipt Date: 20190513
  Transmission Date: 20190711
  Serious: Yes (Death, Hospitalization, Other)
  Sender: FDA-Public Use
  Company Number: KZ-009507513-1905KAZ003535

PATIENT
  Age: 32 Year
  Sex: Male
  Weight: 60 kg

DRUGS (6)
  1. CLOFAZIMINE [Suspect]
     Active Substance: CLOFAZIMINE
     Indication: TUBERCULOSIS
     Dosage: 200 (100) MILLIGRAM, QD
     Route: 048
     Dates: start: 20171207
  2. DELAMANID [Suspect]
     Active Substance: DELAMANID
     Indication: TUBERCULOSIS
     Dosage: 200 MILLIGRAM, QD
     Route: 048
     Dates: start: 20171207, end: 20181201
  3. AMOXICILLIN (+) CLAVULANATE POTASSIUM [Suspect]
     Active Substance: AMOXICILLIN\CLAVULANATE POTASSIUM
     Indication: TUBERCULOSIS
     Dosage: 2000 MILLIGRAM, QD
     Route: 048
     Dates: start: 20170712, end: 20180413
  4. IMIPENEM AND CILASTATIN [Suspect]
     Active Substance: CILASTATIN SODIUM\IMIPENEM
     Indication: TUBERCULOSIS
     Dosage: 2000 MILLIGRAM, QD
     Route: 042
     Dates: start: 20171207, end: 20180413
  5. BEDAQUILINE [Suspect]
     Active Substance: BEDAQUILINE
     Indication: TUBERCULOSIS
     Dosage: 400(200) MGQD
     Route: 048
     Dates: start: 20170712
  6. LINEZOLID. [Suspect]
     Active Substance: LINEZOLID
     Indication: TUBERCULOSIS
     Dosage: 600MG, QD
     Route: 048
     Dates: start: 20170712

REACTIONS (3)
  - Pulmonary embolism [Fatal]
  - Incorrect product administration duration [Unknown]
  - Pulmonary haemorrhage [Recovered/Resolved]

NARRATIVE: CASE EVENT DATE: 20180525
